FAERS Safety Report 5209728-7 (Version None)
Quarter: 2007Q1

REPORT INFORMATION
  Report Type: 
  Country: None (occurrence: None)
  Receive Date: 20070116
  Receipt Date: 20070104
  Transmission Date: 20070707
  Serious: Yes (Disabling, Other)
  Sender: FDA-Public Use
  Company Number: US-PFIZER INC-2005157847

PATIENT
  Sex: Female
  Weight: 90.3 kg

DRUGS (18)
  1. NEURONTIN [Suspect]
     Indication: NEUROPATHY
     Route: 048
     Dates: start: 20030101, end: 20050101
  2. GABAPENTIN [Suspect]
     Indication: NEUROPATHY
     Route: 048
  3. GABAPENTIN [Suspect]
     Route: 048
  4. LIPITOR [Suspect]
  5. GLIPIZIDE [Suspect]
  6. DARVOCET-N 100 [Concomitant]
     Route: 048
  7. TOPROL-XL [Concomitant]
     Route: 048
  8. ACCUPRIL [Concomitant]
     Route: 048
  9. NORVASC [Concomitant]
     Route: 048
  10. ASPIRIN [Concomitant]
     Route: 048
  11. HYDROCHLOROTHIAZIDE [Concomitant]
     Route: 048
  12. NITROLINGUAL [Concomitant]
     Route: 048
  13. IMITREX [Concomitant]
     Route: 048
  14. XANAX [Concomitant]
     Route: 048
  15. HUMULIN 70/30 [Concomitant]
  16. HUMULIN 70/30 [Concomitant]
  17. POTASSIUM ACETATE [Concomitant]
  18. DEMEROL [Concomitant]

REACTIONS (4)
  - CEREBROVASCULAR ACCIDENT [None]
  - DRUG INEFFECTIVE [None]
  - NERVE INJURY [None]
  - VISUAL ACUITY REDUCED [None]
